FAERS Safety Report 21078987 (Version 1)
Quarter: 2022Q3

REPORT INFORMATION
  Report Type: Spontaneous
  Country: ES (occurrence: ES)
  Receive Date: 20220713
  Receipt Date: 20220713
  Transmission Date: 20221026
  Serious: Yes (Other)
  Sender: FDA-Public Use
  Company Number: ES-ABBVIE-22K-144-4463378-00

PATIENT
  Age: 52 Year
  Sex: Male

DRUGS (7)
  1. IMBRUVICA [Suspect]
     Active Substance: IBRUTINIB
     Indication: Product used for unknown indication
     Route: 048
     Dates: start: 201502
  2. IMBRUVICA [Suspect]
     Active Substance: IBRUTINIB
     Route: 048
     Dates: start: 201801
  3. BENDAMUSTINE [Suspect]
     Active Substance: BENDAMUSTINE
     Indication: Product used for unknown indication
     Dosage: CYCLIC (SIX CYCLES)?POWDER (EXCEPT DUSTING POWDER)
     Route: 065
     Dates: start: 201311
  4. CYCLOPHOSPHAMIDE\DOXORUBICIN\PREDNISONE\RITUXIMAB\VINCRISTINE [Suspect]
     Active Substance: CYCLOPHOSPHAMIDE\DOXORUBICIN\PREDNISONE\RITUXIMAB\VINCRISTINE
     Indication: Product used for unknown indication
     Dosage: CYCLIC (SIX CYCLES)
     Route: 065
     Dates: start: 201407
  5. RITUXIMAB [Suspect]
     Active Substance: RITUXIMAB
     Indication: Product used for unknown indication
     Dosage: CYCLIC (SIX CYCLES)
     Route: 065
     Dates: start: 201311
  6. RITUXIMAB [Suspect]
     Active Substance: RITUXIMAB
     Dosage: CYCLIC (SIX CYCLES)
     Route: 065
     Dates: start: 201505
  7. IDELALISIB [Suspect]
     Active Substance: IDELALISIB
     Indication: Product used for unknown indication
     Route: 065
     Dates: start: 201505, end: 201712

REACTIONS (2)
  - Chronic lymphocytic leukaemia [Unknown]
  - Therapy partial responder [Unknown]

NARRATIVE: CASE EVENT DATE: 20171201
